FAERS Safety Report 8958576 (Version 1)
Quarter: 2012Q4

REPORT INFORMATION
  Report Type: Spontaneous
  Country: US (occurrence: None)
  Receive Date: 20121205
  Receipt Date: 20121205
  Transmission Date: 20130627
  Serious: Yes (Hospitalization)
  Sender: FDA-Public Use
  Company Number: None

PATIENT
  Age: 68 Year
  Sex: Female

DRUGS (2)
  1. XARELTO [Suspect]
     Indication: ANTICOAGULANT THERAPY
     Route: 048
     Dates: start: 20121029
  2. XARELTO [Suspect]
     Indication: HIP SURGERY
     Route: 048
     Dates: start: 20121029

REACTIONS (7)
  - Skin discolouration [None]
  - Joint swelling [None]
  - Incision site haemorrhage [None]
  - Hypersensitivity [None]
  - Incision site complication [None]
  - Off label use [None]
  - Post procedural complication [None]
